FAERS Safety Report 8552867 (Version 2)
Quarter: 2013Q1

REPORT INFORMATION
  Report Type: Spontaneous
  Country: ES (occurrence: ES)
  Receive Date: 20120508
  Receipt Date: 20130315
  Transmission Date: 20140127
  Serious: Yes (Disabling, Other)
  Sender: FDA-Public Use
  Company Number: ES-ELI_LILLY_AND_COMPANY-ES201204009016

PATIENT
  Sex: Male

DRUGS (2)
  1. FORSTEO [Suspect]
     Dosage: UNK UNK, UNKNOWN
     Route: 065
     Dates: end: 20120405
  2. HUMIRA [Concomitant]
     Dosage: UNK, UNKNOWN
     Route: 065

REACTIONS (3)
  - Thrombosis [Unknown]
  - Ocular vascular disorder [Unknown]
  - Blindness [Unknown]
